FAERS Safety Report 6146599-9 (Version None)
Quarter: 2009Q2

REPORT INFORMATION
  Report Type: 
  Country: None (occurrence: None)
  Receive Date: 20090407
  Receipt Date: 20090325
  Transmission Date: 20091009
  Serious: Yes (Other)
  Sender: FDA-Public Use
  Company Number: US-ELI_LILLY_AND_COMPANY-US200903006419

PATIENT
  Sex: Female

DRUGS (11)
  1. CYMBALTA [Suspect]
     Dosage: 60 MG, DAILY (1/D)
     Route: 048
     Dates: start: 20040101, end: 20060101
  2. CYMBALTA [Suspect]
     Dosage: 20 MG, UNK
     Route: 048
     Dates: start: 20090317
  3. ZOLOFT [Concomitant]
     Dosage: 1 D/F, UNK
     Route: 048
     Dates: start: 20060101
  4. ZOLOFT [Concomitant]
     Dosage: 200 MG, UNK
     Dates: start: 20070101
  5. ZOLOFT [Concomitant]
     Dosage: 1 D/F, UNK
     Dates: end: 20090101
  6. AMLODIPINE [Concomitant]
     Dosage: 5 MG, DAILY (1/D)
     Route: 048
  7. LISINOPRIL [Concomitant]
     Dosage: 20 MG, DAILY (1/D)
     Route: 048
  8. COREG [Concomitant]
     Dosage: 6025 MG, 2/D
     Route: 050
  9. SIMVASTATIN [Concomitant]
     Dosage: UNK, AS NEEDED
  10. ASPIRIN [Concomitant]
  11. FLUOXETINE [Concomitant]
     Dosage: UNK, UNK
     Route: 048
     Dates: start: 20090101

REACTIONS (4)
  - BLOOD PRESSURE INCREASED [None]
  - HYPERTENSIVE CRISIS [None]
  - NOREPINEPHRINE INCREASED [None]
  - TRANSIENT ISCHAEMIC ATTACK [None]
